FAERS Safety Report 15694371 (Version 1)
Quarter: 2018Q4

REPORT INFORMATION
  Report Type: Spontaneous
  Country: RU (occurrence: RU)
  Receive Date: 20181206
  Receipt Date: 20181206
  Transmission Date: 20190205
  Serious: Yes (Other)
  Sender: FDA-Public Use
  Company Number: PHHY2018RU176169

PATIENT
  Age: 8 Month
  Sex: Female
  Weight: 9 kg

DRUGS (5)
  1. MEDOCLAV [Concomitant]
     Indication: CARDITIS
     Dosage: UNK
     Route: 042
     Dates: start: 20181026
  2. SULTASIN [Concomitant]
     Indication: CARDITIS
     Dosage: UNK
     Route: 030
     Dates: start: 20181025, end: 20181026
  3. HYPOTHIAZID [Concomitant]
     Active Substance: HYDROCHLOROTHIAZIDE
     Indication: CARDITIS
     Dosage: UNK
     Route: 048
     Dates: start: 20181026, end: 20181027
  4. EDICIN [Suspect]
     Active Substance: VANCOMYCIN HYDROCHLORIDE
     Indication: ALPHA HAEMOLYTIC STREPTOCOCCAL INFECTION
     Dosage: 405 MG, QD
     Route: 042
     Dates: start: 20181031, end: 20181101
  5. IBUPROFEN. [Concomitant]
     Active Substance: IBUPROFEN
     Indication: CARDITIS
     Dosage: UNK
     Route: 048
     Dates: start: 20181026, end: 20181027

REACTIONS (1)
  - Rash papular [Recovered/Resolved]

NARRATIVE: CASE EVENT DATE: 20181101
